FAERS Safety Report 11044211 (Version 2)
Quarter: 2015Q2

REPORT INFORMATION
  Report Type: Spontaneous
  Country: JP (occurrence: JP)
  Receive Date: 20150417
  Receipt Date: 20150423
  Transmission Date: 20150821
  Serious: Yes (Death, Life-Threatening, Other)
  Sender: FDA-Public Use
  Company Number: JP-PFIZER INC-2015126677

PATIENT
  Age: 47 Year
  Sex: Male

DRUGS (12)
  1. NITROPEN [Concomitant]
     Active Substance: NITROGLYCERIN
     Indication: ABDOMINAL PAIN UPPER
  2. TRAMCET [Concomitant]
     Active Substance: ACETAMINOPHEN\TRAMADOL
     Indication: HERNIA
     Dosage: 3 DF, DAILY
     Route: 048
     Dates: start: 201308, end: 20150320
  3. LYRICA [Suspect]
     Active Substance: PREGABALIN
     Dosage: 175 MG, DAILY (ADDED 25MG)
     Route: 048
     Dates: start: 201411, end: 201412
  4. LYRICA [Suspect]
     Active Substance: PREGABALIN
     Dosage: UNK
     Route: 048
     Dates: start: 201412, end: 20150320
  5. LYRICA [Suspect]
     Active Substance: PREGABALIN
     Dosage: 150 MG, DAILY
     Route: 048
     Dates: start: 201306, end: 201411
  6. FLOMOX [Concomitant]
     Active Substance: CEFCAPENE PIVOXIL HYDROCHLORIDE HYDRATE
     Indication: PNEUMONIA
     Dosage: 3 DF, DAILY
     Route: 048
  7. BIOFERMIN [Concomitant]
     Active Substance: BACILLUS SUBTILIS\LACTOBACILLUS ACIDOPHILUS\STREPTOCOCCUS FAECAIS
     Indication: PNEUMONIA
     Dosage: 3 DF, DAILY
     Route: 048
  8. FUROSEMIDE. [Concomitant]
     Active Substance: FUROSEMIDE
     Indication: PNEUMONIA
     Dosage: 1 DF, DAILY
     Route: 048
  9. METHYCOBAL [Concomitant]
     Active Substance: METHYLCOBALAMIN
     Indication: HERNIA
     Dosage: 3 DF, DAILY
     Route: 048
     Dates: start: 201306, end: 20150320
  10. GASCON [Concomitant]
     Active Substance: DIMETHICONE
     Indication: PNEUMONIA
     Dosage: 3 DF, DAILY
     Route: 048
  11. OPALMON [Concomitant]
     Active Substance: LIMAPROST
     Indication: HERNIA
     Dosage: 6 DF, DAILY
     Route: 048
     Dates: start: 201306, end: 20150320
  12. MIYA-BM [Concomitant]
     Active Substance: CLOSTRIDIUM BUTYRICUM SPORES STRAIN M-55
     Indication: HERNIA
     Dosage: 6 DF, DAILY
     Route: 048

REACTIONS (10)
  - Electrocardiogram QT prolonged [Fatal]
  - Electrocardiogram ST segment elevation [Fatal]
  - Pulseless electrical activity [Unknown]
  - Loss of consciousness [Fatal]
  - Cardiac amyloidosis [Fatal]
  - Myocardial ischaemia [Unknown]
  - Sepsis [Unknown]
  - Arrhythmia [Fatal]
  - Electrocardiogram Q wave abnormal [Fatal]
  - Brain natriuretic peptide increased [Fatal]

NARRATIVE: CASE EVENT DATE: 201409
